FAERS Safety Report 20966543 (Version 4)
Quarter: 2022Q4

REPORT INFORMATION
  Report Type: Report from Study
  Country: US (occurrence: US)
  Receive Date: 20220616
  Receipt Date: 20221228
  Transmission Date: 20230113
  Serious: Yes (Death, Hospitalization, Other)
  Sender: FDA-Public Use
  Company Number: US-BAXTER-2006BH001630

PATIENT
  Age: 51 Year
  Sex: Male

DRUGS (8)
  1. ANTIHEMOPHILIC FACTOR, PEGYLATED (MW 20000) HUMAN SEQUENCE RECOMBINANT [Suspect]
     Active Substance: ANTIHEMOPHILIC FACTOR, PEGYLATED (MW 20000) HUMAN SEQUENCE RECOMBINANT
     Indication: Haemorrhage
     Dosage: 4800 INTERNATIONAL UNIT, 2/WEEK
     Route: 042
  2. ANTIHEMOPHILIC FACTOR, PEGYLATED (MW 20000) HUMAN SEQUENCE RECOMBINANT [Suspect]
     Active Substance: ANTIHEMOPHILIC FACTOR, PEGYLATED (MW 20000) HUMAN SEQUENCE RECOMBINANT
     Indication: Haemorrhage
     Dosage: 4800 INTERNATIONAL UNIT, 2/WEEK
     Route: 042
  3. ANTIHEMOPHILIC FACTOR, PEGYLATED (MW 20000) HUMAN SEQUENCE RECOMBINANT [Suspect]
     Active Substance: ANTIHEMOPHILIC FACTOR, PEGYLATED (MW 20000) HUMAN SEQUENCE RECOMBINANT
     Indication: Haemorrhage
     Dosage: 4800 INTERNATIONAL UNIT, 2/WEEK
     Route: 042
  4. ANTIHEMOPHILIC FACTOR, PEGYLATED (MW 20000) HUMAN SEQUENCE RECOMBINANT [Suspect]
     Active Substance: ANTIHEMOPHILIC FACTOR, PEGYLATED (MW 20000) HUMAN SEQUENCE RECOMBINANT
     Indication: Post procedural complication
     Dosage: 5000 INTERNATIONAL UNIT, QD
     Route: 042
  5. ANTIHEMOPHILIC FACTOR, PEGYLATED (MW 20000) HUMAN SEQUENCE RECOMBINANT [Suspect]
     Active Substance: ANTIHEMOPHILIC FACTOR, PEGYLATED (MW 20000) HUMAN SEQUENCE RECOMBINANT
     Indication: Post procedural complication
     Dosage: 5000 INTERNATIONAL UNIT, QD
     Route: 042
  6. ANTIHEMOPHILIC FACTOR, PEGYLATED (MW 20000) HUMAN SEQUENCE RECOMBINANT [Suspect]
     Active Substance: ANTIHEMOPHILIC FACTOR, PEGYLATED (MW 20000) HUMAN SEQUENCE RECOMBINANT
     Indication: Post procedural complication
     Dosage: 5000 INTERNATIONAL UNIT, QD
     Route: 042
  7. HEMOFIL [Suspect]
     Active Substance: ANTIHEMOPHILIC FACTOR HUMAN
     Indication: Factor VIII deficiency
     Dosage: UNK
     Route: 065
  8. PROPLEX [Suspect]
     Active Substance: FACTOR IX COMPLEX
     Indication: Factor VIII deficiency
     Dosage: UNK
     Route: 065

REACTIONS (3)
  - Death [Fatal]
  - Hepatitis C [Unknown]
  - Haemarthrosis [Recovered/Resolved]

NARRATIVE: CASE EVENT DATE: 20221219
